FAERS Safety Report 16958559 (Version 1)
Quarter: 2019Q4

REPORT INFORMATION
  Report Type: Other
  Country: UA (occurrence: UA)
  Receive Date: 20191024
  Receipt Date: 20191024
  Transmission Date: 20200122
  Serious: Yes (Hospitalization, Other)
  Sender: FDA-Public Use
  Company Number: UA-AMNEAL PHARMACEUTICALS-2019-AMRX-02343

PATIENT
  Age: 5 Year
  Sex: Female

DRUGS (1)
  1. ALBENZA [Suspect]
     Active Substance: ALBENDAZOLE
     Indication: PRODUCT USED FOR UNKNOWN INDICATION
     Dosage: 1 TABLETS
     Route: 065
     Dates: start: 20190517

REACTIONS (13)
  - Drug-induced liver injury [Unknown]
  - Malaise [Unknown]
  - Abdominal distension [Unknown]
  - Constipation [Unknown]
  - Capillaritis [Unknown]
  - Pain in extremity [Unknown]
  - Flatulence [Unknown]
  - Sinus arrhythmia [Unknown]
  - Jaundice [Unknown]
  - Decreased appetite [Unknown]
  - Abdominal pain [Unknown]
  - Weight decreased [Unknown]
  - Fatigue [Unknown]

NARRATIVE: CASE EVENT DATE: 20190522
